FAERS Safety Report 7623123-2 (Version None)
Quarter: 2011Q3

REPORT INFORMATION
  Report Type: 
  Country: None (occurrence: None)
  Receive Date: 20110720
  Receipt Date: 20110706
  Transmission Date: 20111222
  Serious: Yes (Other)
  Sender: FDA-Public Use
  Company Number: PHHY2011CA61040

PATIENT
  Sex: Male

DRUGS (2)
  1. AFINITOR [Suspect]
     Indication: ENDOCRINE NEOPLASM
     Dosage: 10 MG, UNK
     Route: 048
     Dates: start: 20110516, end: 20110706
  2. SANDOSTATIN LAR [Suspect]
     Indication: NEUROENDOCRINE TUMOUR
     Dosage: 30 MG, EVERY 4 WEEKS
     Route: 030
     Dates: start: 20081110

REACTIONS (10)
  - NOCTURIA [None]
  - DYSGEUSIA [None]
  - IMPATIENCE [None]
  - DRY SKIN [None]
  - BLISTER [None]
  - STOMATITIS [None]
  - RASH MACULO-PAPULAR [None]
  - SKIN EXFOLIATION [None]
  - AGEUSIA [None]
  - ANGER [None]
